FAERS Safety Report 14243872 (Version 1)
Quarter: 2017Q4

REPORT INFORMATION
  Report Type: Report from Study
  Country: BR (occurrence: BR)
  Receive Date: 20171201
  Receipt Date: 20171201
  Transmission Date: 20180321
  Serious: Yes (Other)
  Sender: FDA-Public Use
  Company Number: PHHY2017BR175308

PATIENT
  Sex: Male
  Weight: 84 kg

DRUGS (1)
  1. FORASEQ [Suspect]
     Active Substance: BUDESONIDE\FORMOTEROL FUMARATE
     Indication: ASTHMA
     Dosage: 1 DF, BID (FORMOTEROL FUMARATE 12, BUDESONIDE 400 (UNITS NOT PROVIDED)
     Route: 055

REACTIONS (2)
  - Asthmatic crisis [Unknown]
  - Malaise [Unknown]
